FAERS Safety Report 20368117 (Version 1)
Quarter: 2022Q1

REPORT INFORMATION
  Report Type: Spontaneous
  Country: CA (occurrence: CA)
  Receive Date: 20220124
  Receipt Date: 20220124
  Transmission Date: 20220424
  Serious: Yes (Other)
  Sender: FDA-Public Use
  Company Number: CA-CELLTRION INC.-2022CA000660

PATIENT

DRUGS (1)
  1. TRUXIMA [Suspect]
     Active Substance: RITUXIMAB-ABBS
     Indication: Castleman^s disease
     Dosage: 671 MG PER DOSE (375MG / M2 WEEKLY FOR A TOTAL OF 3 DOSES)

REACTIONS (3)
  - Castleman^s disease [Unknown]
  - Off label use [Unknown]
  - Maternal exposure during pregnancy [Unknown]
